FAERS Safety Report 4554971-3 (Version None)
Quarter: 2004Q4

REPORT INFORMATION
  Report Type: 
  Country: None (occurrence: None)
  Receive Date: 20041222
  Receipt Date: 20041006
  Transmission Date: 20050328
  Serious: Yes (Death, Life-Threatening, Hospitalization)
  Sender: FDA-Public Use
  Company Number: 208387

PATIENT
  Age: 78 Year
  Sex: Male
  Weight: 86.6 kg

DRUGS (11)
  1. AVASTIN [Suspect]
     Indication: COLORECTAL CANCER
     Dosage: 400 MG, Q2W, INTRAVENOUS
     Route: 042
     Dates: start: 20040719, end: 20040809
  2. FLUOROURACIL [Suspect]
     Indication: COLORECTAL CANCER
     Dosage: INTRAVENOUS
     Route: 042
     Dates: start: 20040308
  3. LEUCOVORIN CALCIUM [Suspect]
     Indication: COLORECTAL CANCER
     Dosage: 350 MG, INTRAVENOUS
     Route: 042
     Dates: start: 20040308
  4. OXALIPLATIN [Suspect]
     Indication: COLORECTAL CANCER
     Dosage: 160 MG, INTRAVENOUS
     Route: 042
     Dates: start: 20040308
  5. GEMFIBROZIL [Concomitant]
  6. GLIPIZIDE [Concomitant]
  7. LISINOPRIL [Concomitant]
  8. METOPROLOL TARTRATE [Concomitant]
  9. SIMVASTATIN [Concomitant]
  10. RANITIDINE [Concomitant]
  11. GABAPENTIN [Concomitant]

REACTIONS (1)
  - MYOCARDIAL INFARCTION [None]
